FAERS Safety Report 7555887-0 (Version None)
Quarter: 2011Q2

REPORT INFORMATION
  Report Type: 
  Country: None (occurrence: None)
  Receive Date: 20110618
  Receipt Date: 20110531
  Transmission Date: 20111010
  Serious: Yes (Hospitalization, Other)
  Sender: FDA-Public Use
  Company Number: JP-BAYER-201014759BYL

PATIENT
  Age: 69 Year
  Sex: Male
  Weight: 69 kg

DRUGS (27)
  1. TENORMIN [Concomitant]
     Dosage: 25 MG (DAILY DOSE), , ORAL
     Route: 048
     Dates: start: 20100407
  2. NEXAVAR [Suspect]
     Indication: HEPATIC NEOPLASM MALIGNANT
     Dosage: 400 MG (DAILY DOSE), , ORAL
     Route: 048
     Dates: start: 20100722, end: 20100805
  3. LORFENAMIN [Concomitant]
     Dosage: 60 MG (DAILY DOSE), , ORAL
     Route: 048
     Dates: start: 20100916
  4. AMINOLEBAN EN [Concomitant]
     Dosage: 50 G (DAILY DOSE), , ORAL
     Route: 048
     Dates: start: 20100416
  5. LANSOPRAZOLE [Concomitant]
     Dosage: 30 MG (DAILY DOSE), , ORAL
     Route: 048
     Dates: start: 20100612
  6. PURSENNID [Concomitant]
     Dosage: 24 MG (DAILY DOSE), , ORAL
     Route: 048
     Dates: start: 20100416
  7. MACMET [Concomitant]
     Dosage: 3.6 G (DAILY DOSE), , ORAL
     Route: 048
     Dates: start: 20100207
  8. MUCOSTA [Concomitant]
     Dosage: 300 MG (DAILY DOSE), , ORAL
     Route: 048
     Dates: start: 20100806
  9. ADALAT CC [Concomitant]
     Dosage: 20 MG (DAILY DOSE), , ORAL
     Route: 048
     Dates: start: 20100916
  10. INDERAL LA [Concomitant]
     Dosage: 60 MG, QD
     Route: 048
     Dates: start: 20101102
  11. NORVASC [Concomitant]
     Dosage: 5 MG, QD
     Route: 048
     Dates: start: 20100722, end: 20100804
  12. URSO 250 [Concomitant]
     Dosage: 300 MG (DAILY DOSE), , ORAL
     Route: 048
     Dates: start: 20100416
  13. MACACY A [Concomitant]
     Dosage: 50 MG (DAILY DOSE), , ORAL
     Route: 048
     Dates: start: 20100410
  14. AMLODIPINE [Concomitant]
     Dosage: 5 MG (DAILY DOSE), , ORAL
     Route: 048
     Dates: start: 20100805
  15. LAXOBERON [Concomitant]
     Dosage: 1.42 ML (DAILY DOSE), , ORAL
     Route: 048
     Dates: start: 20100618, end: 20100901
  16. NEXAVAR [Suspect]
     Dosage: 400 MG (DAILY DOSE), , ORAL
     Route: 048
     Dates: start: 20100817, end: 20101025
  17. RINDERON-VG [Concomitant]
     Route: 061
     Dates: start: 20100722
  18. PORTOLAC [Concomitant]
     Dosage: 18 G (DAILY DOSE), , ORAL
     Route: 048
     Dates: start: 20100415
  19. SODIUM ALGINATE [Concomitant]
     Dosage: 12.8 ML (DAILY DOSE), , ORAL
     Route: 048
     Dates: start: 20100806
  20. RABEPRAZOLE SODIUM [Concomitant]
     Dosage: 20 MG (DAILY DOSE), , ORAL
     Route: 048
     Dates: start: 20100907
  21. NAUZELIN [Concomitant]
     Dosage: 10 MG (DAILY DOSE), , ORAL
     Route: 048
     Dates: start: 20100916
  22. MAGNESIUM SULFATE [Concomitant]
     Dosage: DAILY DOSE 990 MG
     Route: 048
     Dates: start: 20101110
  23. LACTULOSE [Concomitant]
     Dosage: 60 ML (DAILY DOSE), , ORAL
     Route: 048
     Dates: start: 20100523
  24. LIVACT [Concomitant]
     Dosage: 12.45 G (DAILY DOSE), , ORAL
     Route: 048
     Dates: start: 20090519
  25. LASIX [Concomitant]
     Dosage: 40 MG (DAILY DOSE), , ORAL
     Route: 048
     Dates: start: 20100609
  26. PROMAC [POLAPREZINC] [Concomitant]
     Dosage: 150 MG (DAILY DOSE), , ORAL
     Route: 048
     Dates: start: 20100207
  27. UREPEARL [Concomitant]
     Route: 061
     Dates: start: 20100722

REACTIONS (12)
  - HEPATIC ENCEPHALOPATHY [None]
  - NAUSEA [None]
  - FACE OEDEMA [None]
  - RASH [None]
  - PRURITUS [None]
  - HAEMOGLOBIN DECREASED [None]
  - STOMATITIS [None]
  - DIARRHOEA [None]
  - DECREASED APPETITE [None]
  - FATIGUE [None]
  - HYPERTENSION [None]
  - OEDEMA PERIPHERAL [None]
